FAERS Safety Report 14277680 (Version 1)
Quarter: 2017Q4

REPORT INFORMATION
  Report Type: Spontaneous
  Country: JP (occurrence: JP)
  Receive Date: 20171211
  Receipt Date: 20171211
  Transmission Date: 20180321
  Serious: Yes (Other)
  Sender: FDA-Public Use
  Company Number: JP-OTSUKA-JP-2014-14142

PATIENT
  Age: 35 Year
  Sex: Female

DRUGS (2)
  1. ABILIFY [Suspect]
     Active Substance: ARIPIPRAZOLE
     Indication: SCHIZOPHRENIA
     Dosage: 30 MG, QD
     Route: 048
  2. RITODRINE [Concomitant]
     Active Substance: RITODRINE
     Indication: PRODUCT USED FOR UNKNOWN INDICATION
     Dosage: 5 MG, QID
     Route: 048

REACTIONS (6)
  - Maternal exposure during pregnancy [Unknown]
  - Twin pregnancy [Recovered/Resolved]
  - Placenta praevia [Unknown]
  - Premature labour [Unknown]
  - Premature delivery [Unknown]
  - Off label use [Unknown]

NARRATIVE: CASE EVENT DATE: 20140604
